FAERS Safety Report 16472958 (Version 1)
Quarter: 2019Q2

REPORT INFORMATION
  Report Type: Spontaneous
  Country: GB (occurrence: GB)
  Receive Date: 20190625
  Receipt Date: 20190625
  Transmission Date: 20190711
  Serious: Yes (Other)
  Sender: FDA-Public Use
  Company Number: PHHY2019GB143921

PATIENT
  Age: 24 Year
  Sex: Female
  Weight: 34 kg

DRUGS (5)
  1. INVITA D3 [Concomitant]
     Indication: PRODUCT USED FOR UNKNOWN INDICATION
     Dosage: 1 DF, QW (AMPOULE. FOR 3 WEEKS.)
     Route: 065
     Dates: start: 20190510
  2. DOXYCYCLINE. [Concomitant]
     Active Substance: DOXYCYCLINE
     Indication: PRODUCT USED FOR UNKNOWN INDICATION
     Dosage: UNK (TWO NOW THEN ONE DAILY)
     Route: 065
     Dates: start: 20190507
  3. AMOXICILLIN. [Suspect]
     Active Substance: AMOXICILLIN
     Indication: PRODUCT USED FOR UNKNOWN INDICATION
     Dosage: 500 MG, UNK
     Route: 065
  4. DOXYCYCLINE. [Concomitant]
     Active Substance: DOXYCYCLINE
     Dosage: UNK (TWO NOW THEN ONE DAILY)
     Route: 065
     Dates: start: 20190514
  5. INVITA D3 [Concomitant]
     Dosage: 1 DF, QW (AMPOULE. FOR 3 WEEKS.)
     Route: 065
     Dates: start: 20190513

REACTIONS (1)
  - Mouth ulceration [Recovered/Resolved]

NARRATIVE: CASE EVENT DATE: 20190520
